FAERS Safety Report 24048415 (Version 1)
Quarter: 2024Q3

REPORT INFORMATION
  Report Type: Spontaneous
  Country: JP (occurrence: JP)
  Receive Date: 20240704
  Receipt Date: 20240704
  Transmission Date: 20241016
  Serious: Yes (Death)
  Sender: ROCHE
  Company Number: JP-CHUGAI-2024017643

PATIENT
  Age: 6 Decade
  Sex: Male

DRUGS (1)
  1. TECENTRIQ [Suspect]
     Active Substance: ATEZOLIZUMAB
     Indication: Non-small cell lung cancer
     Dosage: 1200 MILLIGRAM, ONCE/3WEEKS
     Route: 065
     Dates: start: 20240411, end: 20240411

REACTIONS (2)
  - Death [Fatal]
  - Oedema peripheral [Not Recovered/Not Resolved]
